FAERS Safety Report 9423292 (Version 2)
Quarter: 2014Q1

REPORT INFORMATION
  Report Type: Spontaneous
  Country: US (occurrence: US)
  Receive Date: 20130726
  Receipt Date: 20140205
  Transmission Date: 20141002
  Serious: Yes (Other)
  Sender: FDA-Public Use
  Company Number: US-BAYER-2013-086784

PATIENT
  Age: 35 Year
  Sex: Female
  Weight: 106.58 kg

DRUGS (1)
  1. MIRENA [Suspect]
     Dosage: 20 MCG/24HR, CONT
     Route: 015
     Dates: start: 20080710, end: 20110701

REACTIONS (13)
  - Uterine perforation [None]
  - Injury [None]
  - Pain [None]
  - Emotional distress [None]
  - Genital haemorrhage [None]
  - Abdominal pain lower [None]
  - Abdominal pain [None]
  - Pelvic pain [None]
  - Depression [None]
  - Anxiety [None]
  - Panic attack [None]
  - Device issue [None]
  - Uterine prolapse [None]
